FAERS Safety Report 19009725 (Version 2)
Quarter: 2021Q3

REPORT INFORMATION
  Report Type: Report from Study
  Country: JP (occurrence: JP)
  Receive Date: 20210316
  Receipt Date: 20210729
  Transmission Date: 20211014
  Serious: Yes (Disabling)
  Sender: FDA-Public Use
  Company Number: JP-RECORDATI RARE DISEASES INC.-2020004821

PATIENT
  Sex: Male
  Weight: 1.06 kg

DRUGS (12)
  1. SODIUM BICARBONATE. [Concomitant]
     Active Substance: SODIUM BICARBONATE
     Indication: METABOLIC ACIDOSIS
     Dosage: UNK, UNK
     Route: 042
     Dates: start: 20190522, end: 20190522
  2. AMPICILLIN SODIUM. [Concomitant]
     Active Substance: AMPICILLIN SODIUM
     Indication: PROPHYLAXIS
     Dosage: UNK, UNK
     Route: 042
     Dates: start: 20190521, end: 20190523
  3. ANHYDROUS CAFFEINE [Concomitant]
     Active Substance: CAFFEINE
     Indication: APNOEIC ATTACK
     Dosage: UNK, UNK
     Route: 042
     Dates: start: 20190521, end: 20190629
  4. NEOPROFEN [Suspect]
     Active Substance: IBUPROFEN LYSINE
     Dosage: 5 MILLIGRAM, QD
     Route: 042
     Dates: start: 20190523, end: 20190523
  5. NEOPROFEN [Suspect]
     Active Substance: IBUPROFEN LYSINE
     Dosage: 10 MILLIGRAM, QD
     Route: 042
     Dates: start: 20190609, end: 20190609
  6. MENATETRENONE [Concomitant]
     Active Substance: MENATETRENONE
     Indication: VITAMIN SUPPLEMENTATION
     Dosage: UNK, UNK
     Route: 042
     Dates: start: 20190521, end: 20190521
  7. NEOPROFEN [Suspect]
     Active Substance: IBUPROFEN LYSINE
     Indication: PATENT DUCTUS ARTERIOSUS
     Dosage: 10 MILLIGRAM, QD
     Route: 042
     Dates: start: 20190521, end: 20190521
  8. NEOPROFEN [Suspect]
     Active Substance: IBUPROFEN LYSINE
     Dosage: 5 MILLIGRAM, QD
     Route: 042
     Dates: start: 20190522, end: 20190522
  9. NEOPROFEN [Suspect]
     Active Substance: IBUPROFEN LYSINE
     Dosage: 5 MILLIGRAM, QD
     Route: 042
     Dates: start: 20190610, end: 20190610
  10. PHENOBARBITAL. [Concomitant]
     Active Substance: PHENOBARBITAL
     Indication: PRODUCT USED FOR UNKNOWN INDICATION
     Dosage: UNK, UNK
     Route: 042
     Dates: start: 20190524, end: 20190524
  11. HYDROCORTISONE SODIUM SUCCINATE [Concomitant]
     Active Substance: HYDROCORTISONE SODIUM SUCCINATE
     Indication: BRONCHOPULMONARY DYSPLASIA
     Dosage: UNK, UNK
     Route: 042
     Dates: start: 20190530, end: 20190618
  12. SURFACTEN [Concomitant]
     Indication: NEONATAL RESPIRATORY DISTRESS SYNDROME
     Dosage: UNK, UNK
     Route: 037
     Dates: start: 20190521, end: 20190521

REACTIONS (4)
  - Hyponatraemia [Recovered/Resolved]
  - Blood creatinine increased [None]
  - Bronchopulmonary dysplasia [Recovered/Resolved]
  - Abdominal distension [Recovered/Resolved]

NARRATIVE: CASE EVENT DATE: 20190522
